FAERS Safety Report 7707092 (Version 2)
Quarter: 2013Q4

REPORT INFORMATION
  Report Type: Report from Study
  Country: NL (occurrence: NL)
  Receive Date: 20101214
  Receipt Date: 20131004
  Transmission Date: 20140711
  Serious: Yes (Other)
  Sender: FDA-Public Use
  Company Number: NL-ROCHE-746967

PATIENT
  Sex: 0

DRUGS (3)
  1. BEVACIZUMAB [Suspect]
     Indication: RECTAL CANCER METASTATIC
     Route: 042
  2. CAPECITABINE [Suspect]
     Indication: RECTAL CANCER METASTATIC
     Dosage: CYCLES OF 3 WEEKS
     Route: 048
  3. OXALIPLATIN [Suspect]
     Indication: RECTAL CANCER METASTATIC
     Dosage: CYCLES OF 3 WEEKS
     Route: 042

REACTIONS (15)
  - Diarrhoea [Unknown]
  - Thrombosis [Unknown]
  - Fatigue [Unknown]
  - Pain [Unknown]
  - Palmar-plantar erythrodysaesthesia syndrome [Unknown]
  - Cholecystitis [Unknown]
  - Constipation [Unknown]
  - Pulmonary embolism [Unknown]
  - Infection [Unknown]
  - Angiopathy [Unknown]
  - Tumour pain [Unknown]
  - Skin toxicity [Unknown]
  - Abdominal infection [Unknown]
  - Anastomotic leak [Unknown]
  - Rectal discharge [Unknown]
